FAERS Safety Report 4436964-X (Version None)
Quarter: 2004Q3

REPORT INFORMATION
  Report Type: 
  Country: None (occurrence: None)
  Receive Date: 20040830
  Receipt Date: 20031013
  Transmission Date: 20050211
  Serious: No
  Sender: FDA-Public Use
  Company Number: US-GLAXOSMITHKLINE-A0429993A

PATIENT
  Age: 54 Year
  Sex: Female

DRUGS (1)
  1. BECONASE [Suspect]
     Indication: SINUSITIS
     Dosage: 2SPR TWICE PER DAY
     Route: 045
     Dates: start: 20031010

REACTIONS (1)
  - DRUG INEFFECTIVE [None]
